FAERS Safety Report 18246538 (Version 1)
Quarter: 2020Q3

REPORT INFORMATION
  Report Type: Spontaneous
  Country: US (occurrence: US)
  Receive Date: 20200609
  Receipt Date: 20200609
  Transmission Date: 20201103
  Serious: No
  Sender: FDA-Public Use
  Company Number: None

PATIENT
  Sex: Female

DRUGS (1)
  1. LOPINAVIR?RITONAVIR [Suspect]
     Active Substance: LOPINAVIR\RITONAVIR
     Indication: COVID-19
     Dosage: OTHER DOSE:40MG?100MG;?TREATMENT DATES (D.3): 2020

REACTIONS (5)
  - Haemoptysis [None]
  - Pneumonia [None]
  - Chest discomfort [None]
  - Influenza like illness [None]
  - COVID-19 pneumonia [None]
